FAERS Safety Report 4662045-6 (Version None)
Quarter: 2005Q2

REPORT INFORMATION
  Report Type: 
  Country: None (occurrence: None)
  Receive Date: 20050512
  Receipt Date: 20050512
  Transmission Date: 20051028
  Serious: Yes (Other)
  Sender: FDA-Public Use
  Company Number: None

PATIENT
  Sex: Male
  Weight: 19.5047 kg

DRUGS (2)
  1. ELIDEL [Suspect]
     Indication: DERMATITIS ATOPIC
     Dosage: APPLIED ONCE DAILY TO AFFECTED AREA AS NEEDED   18-24 MONTHS , ON + OFF
     Dates: end: 20041201
  2. ZYRTEC [Concomitant]

REACTIONS (1)
  - MOLLUSCUM CONTAGIOSUM [None]
